FAERS Safety Report 9548310 (Version 1)
Quarter: 2013Q2

REPORT INFORMATION
  Report Type: Spontaneous
  Country: US (occurrence: None)
  Receive Date: 20130627
  Receipt Date: 20130627
  Transmission Date: 20140414
  Serious: No
  Sender: FDA-Public Use
  Company Number: 1000044883

PATIENT
  Age: 45 Year
  Sex: Male

DRUGS (4)
  1. LINZESS (LINACLOTIDE) (290 MICROGRAM, CAPSULES) [Suspect]
     Indication: CONSTIPATION
     Dosage: 290 MCG (290 MCG, 1 IN 1 D), ORAL
     Route: 048
     Dates: start: 201301, end: 2013
  2. OMEPRAZOLE (OMEPRAZOLE) (OMEPRAZOLE) [Concomitant]
  3. SENOKOT (SENNA) (SENNA) [Concomitant]
  4. VICODINE (ACETAMINOPHEN, HYDROCODONE) (ACETAMINOPHEN, HYDROCODONE)? [Concomitant]

REACTIONS (1)
  - Pruritus [None]
